FAERS Safety Report 22982588 (Version 3)
Quarter: 2024Q1

REPORT INFORMATION
  Report Type: Spontaneous
  Country: DE (occurrence: DE)
  Receive Date: 20230926
  Receipt Date: 20240301
  Transmission Date: 20240410
  Serious: Yes (Hospitalization, Other)
  Sender: FDA-Public Use
  Company Number: DE-ABBVIE-5297765

PATIENT
  Age: 32 Year
  Sex: Male

DRUGS (2)
  1. ADALIMUMAB [Suspect]
     Active Substance: ADALIMUMAB\ISOPROPYL ALCOHOL
     Indication: Rheumatoid arthritis
     Dosage: 40.000MG
     Route: 058
     Dates: start: 201201, end: 201412
  2. USTEKINUMAB [Concomitant]
     Active Substance: USTEKINUMAB
     Indication: Product used for unknown indication
     Dosage: 90.000MG
     Route: 058
     Dates: start: 201412, end: 201704

REACTIONS (5)
  - Chronic sinusitis [Unknown]
  - Synovectomy [Unknown]
  - Sinus disorder [Unknown]
  - Prosthesis implantation [Unknown]
  - Hypertension [Unknown]

NARRATIVE: CASE EVENT DATE: 20140601
